FAERS Safety Report 8548003-X (Version None)
Quarter: 2012Q3

REPORT INFORMATION
  Report Type: 
  Country: None (occurrence: None)
  Receive Date: 20120729
  Receipt Date: 20120723
  Transmission Date: 20120928
  Serious: Yes (Hospitalization)
  Sender: FDA-Public Use
  Company Number: US-009507513-1207USA009802

PATIENT

DRUGS (1)
  1. ZOCOR [Suspect]
     Dosage: 80 MG, HS
     Route: 048

REACTIONS (5)
  - RHABDOMYOLYSIS [None]
  - RENAL FAILURE ACUTE [None]
  - MYALGIA [None]
  - ASTHENIA [None]
  - HEPATIC ENZYME INCREASED [None]
